FAERS Safety Report 13566585 (Version 2)
Quarter: 2017Q2

REPORT INFORMATION
  Report Type: Report from Study
  Country: US (occurrence: US)
  Receive Date: 20170522
  Receipt Date: 20170524
  Transmission Date: 20170830
  Serious: Yes (Hospitalization, Other)
  Sender: FDA-Public Use
  Company Number: US-ROCHE-1937468

PATIENT
  Sex: Female

DRUGS (3)
  1. BLOOD TRANSFUSION [Concomitant]
     Active Substance: HUMAN RED BLOOD CELL
     Indication: HAEMORRHAGE
     Dosage: NO
     Route: 065
     Dates: start: 2016
  2. LUCENTIS [Suspect]
     Active Substance: RANIBIZUMAB
     Indication: RETINAL VEIN OCCLUSION
     Dosage: ONGOING-NO
     Route: 050
     Dates: end: 2016
  3. LUCENTIS [Suspect]
     Active Substance: RANIBIZUMAB
     Indication: MACULAR OEDEMA
     Dosage: ONGOING-YES
     Route: 050
     Dates: start: 201701

REACTIONS (6)
  - Haematoma evacuation [Recovered/Resolved]
  - Procedural haemorrhage [Recovered/Resolved]
  - Colon cancer [Recovered/Resolved]
  - Haemorrhage [Recovered/Resolved]
  - Pulmonary embolism [Recovered/Resolved]
  - Visual impairment [Recovered/Resolved]
